FAERS Safety Report 9338099 (Version 1)
Quarter: 2013Q2

REPORT INFORMATION
  Report Type: Spontaneous
  Country: US (occurrence: US)
  Receive Date: 20130610
  Receipt Date: 20130610
  Transmission Date: 20140414
  Serious: No
  Sender: FDA-Public Use
  Company Number: US-009507513-1306USA002877

PATIENT
  Age: 14 Year
  Sex: Female
  Weight: 52.15 kg

DRUGS (2)
  1. IMPLANON [Suspect]
     Indication: CONTRACEPTION
     Dosage: 1 DF, UNK
     Route: 059
     Dates: start: 20120223
  2. EXCEDRIN (ACETAMINOPHEN (+) CAFFEINE) [Concomitant]

REACTIONS (2)
  - Vaginal haemorrhage [Unknown]
  - Vaginal haemorrhage [Unknown]
